FAERS Safety Report 4336495-1 (Version None)
Quarter: 2004Q2

REPORT INFORMATION
  Report Type: 
  Country: None (occurrence: None)
  Receive Date: 20040412
  Receipt Date: 20040406
  Transmission Date: 20050107
  Serious: Yes (Hospitalization)
  Sender: FDA-Public Use
  Company Number: 200413897GDDC

PATIENT
  Age: 67 Year
  Sex: Male
  Weight: 94 kg

DRUGS (5)
  1. INSULIN GLARGINE [Suspect]
     Indication: DIABETES MELLITUS NON-INSULIN-DEPENDENT
     Dosage: DOSE UNIT: UNITS
     Route: 058
     Dates: start: 20031008
  2. GLYADE [Concomitant]
     Indication: DIABETES MELLITUS NON-INSULIN-DEPENDENT
     Route: 048
     Dates: start: 19930101
  3. DIAFORMIN [Concomitant]
     Indication: DIABETES MELLITUS NON-INSULIN-DEPENDENT
     Route: 048
     Dates: start: 20030608
  4. VERAPAMIL [Concomitant]
     Route: 048
     Dates: start: 20030701
  5. ASTRIX [Concomitant]
     Route: 048
     Dates: start: 20030701

REACTIONS (2)
  - ABDOMINAL PAIN [None]
  - NEPHROLITHIASIS [None]
